FAERS Safety Report 9463112 (Version 1)
Quarter: 2013Q3

REPORT INFORMATION
  Report Type: Spontaneous
  Country: DE (occurrence: DE)
  Receive Date: 20130816
  Receipt Date: 20130816
  Transmission Date: 20140515
  Serious: Yes (Death, Other)
  Sender: FDA-Public Use
  Company Number: DE-ASTRAZENECA-2013SE63772

PATIENT
  Sex: Female
  Weight: 1.1 kg

DRUGS (5)
  1. BELOC-ZOK [Suspect]
     Indication: HYPERTENSION
     Route: 064
  2. PROPYLTHIOURACIL [Suspect]
     Indication: HYPERTHYROIDISM
     Route: 064
  3. KEIMAX [Concomitant]
     Indication: CYSTITIS
     Route: 064
  4. FOLSAURE [Concomitant]
     Indication: PROPHYLAXIS OF NEURAL TUBE DEFECT
     Route: 064
  5. CELESTAN [Concomitant]
     Route: 064

REACTIONS (4)
  - Premature baby [Unknown]
  - Sepsis [Fatal]
  - Cerebral haemorrhage [Unknown]
  - Foetal growth restriction [Unknown]
